FAERS Safety Report 4731508-7 (Version None)
Quarter: 2005Q3

REPORT INFORMATION
  Report Type: 
  Country: None (occurrence: None)
  Receive Date: 20050721
  Receipt Date: 20050607
  Transmission Date: 20060218
  Serious: Yes (Other)
  Sender: FDA-Public Use
  Company Number: 2005087131

PATIENT
  Age: 45 Year
  Sex: Male

DRUGS (2)
  1. RELPAX [Suspect]
     Indication: MIGRAINE
  2. IMITREX [Concomitant]

REACTIONS (1)
  - VOMITING [None]
